FAERS Safety Report 20151037 (Version 1)
Quarter: 2021Q4

REPORT INFORMATION
  Report Type: Other
  Country: IT (occurrence: IT)
  Receive Date: 20211206
  Receipt Date: 20211206
  Transmission Date: 20220303
  Serious: Yes (Other)
  Sender: FDA-Public Use
  Company Number: IT-MACLEODS PHARMACEUTICALS US LTD-MAC2021033589

PATIENT

DRUGS (7)
  1. OLMESARTAN MEDOXOMIL [Suspect]
     Active Substance: OLMESARTAN MEDOXOMIL
     Indication: Hypertension
     Dosage: 10 MILLIGRAM, PRN, 1 AS NECESSARY
     Route: 048
     Dates: start: 20210916
  2. AMLODIPINE BESYLATE\OLMESARTAN MEDOXOMIL [Suspect]
     Active Substance: AMLODIPINE BESYLATE\OLMESARTAN MEDOXOMIL
     Indication: Hypertension
     Dosage: 50 MILLIGRAM, QD
     Route: 048
     Dates: start: 20210914, end: 20210917
  3. CARVEDILOL [Suspect]
     Active Substance: CARVEDILOL
     Indication: Hypertension
     Dosage: 25 MILLIGRAM, QD
     Route: 065
     Dates: start: 20210914
  4. CARDURA [Suspect]
     Active Substance: DOXAZOSIN MESYLATE
     Indication: Hypertension
     Dosage: 4 MILLIGRAM, QD
     Route: 048
     Dates: start: 20210914
  5. PLAVIX [Concomitant]
     Active Substance: CLOPIDOGREL BISULFATE
     Indication: Arterial stenosis
     Dosage: 75 MILLIGRAM
     Route: 048
     Dates: start: 20210916
  6. ASPIRIN [Concomitant]
     Active Substance: ASPIRIN
     Indication: Product used for unknown indication
     Dosage: 100 MILLIGRAM
     Route: 048
  7. PANTOPRAZOLE [Concomitant]
     Active Substance: PANTOPRAZOLE
     Indication: Gastrooesophageal reflux prophylaxis
     Dosage: 40 MILLIGRAM
     Route: 048
     Dates: start: 20210916

REACTIONS (2)
  - Syncope [Recovered/Resolved]
  - Hypotension [Recovered/Resolved]

NARRATIVE: CASE EVENT DATE: 20210917
